FAERS Safety Report 18821515 (Version 1)
Quarter: 2021Q1

REPORT INFORMATION
  Report Type: Spontaneous
  Country: FR (occurrence: FR)
  Receive Date: 20210201
  Receipt Date: 20210201
  Transmission Date: 20210419
  Serious: Yes (Other)
  Sender: FDA-Public Use
  Company Number: FR-PFIZER INC-2021065850

PATIENT
  Age: 42 Year
  Sex: Female
  Weight: 140 kg

DRUGS (10)
  1. VENLAFAXINE HCL [Suspect]
     Active Substance: VENLAFAXINE HYDROCHLORIDE
     Indication: MIXED ANXIETY AND DEPRESSIVE DISORDER
     Dosage: 37.5 MG, 1X/DAY
     Route: 048
     Dates: start: 20200907
  2. LANSOPRAZOLE. [Concomitant]
     Active Substance: LANSOPRAZOLE
     Route: 048
  3. LARGACTIL [CHLORPROMAZINE HYDROCHLORIDE] [Suspect]
     Active Substance: CHLORPROMAZINE HYDROCHLORIDE
     Indication: MIXED ANXIETY AND DEPRESSIVE DISORDER
     Dosage: 3 DF, 1X/DAY
     Route: 048
     Dates: start: 20200907
  4. MIRTAZAPINE. [Suspect]
     Active Substance: MIRTAZAPINE
     Indication: MIXED ANXIETY AND DEPRESSIVE DISORDER
     Dosage: 15 MG, 1X/DAY
     Route: 048
     Dates: start: 202002
  5. ZOPICLONE [Concomitant]
     Active Substance: ZOPICLONE
     Route: 048
  6. PERINDOPRIL [Concomitant]
     Active Substance: PERINDOPRIL
     Route: 048
  7. FOLIC ACID. [Concomitant]
     Active Substance: FOLIC ACID
     Route: 048
  8. FUROSEMIDE. [Concomitant]
     Active Substance: FUROSEMIDE
     Route: 048
  9. THERALENE [Suspect]
     Active Substance: TRIMEPRAZINE
     Indication: MIXED ANXIETY AND DEPRESSIVE DISORDER
     Dosage: 1 DF, 1X/DAY
     Route: 048
     Dates: start: 202002
  10. TERCIAN [CYAMEMAZINE TARTRATE] [Suspect]
     Active Substance: CYAMEMAZINE
     Indication: MIXED ANXIETY AND DEPRESSIVE DISORDER
     Dosage: 4 DF, 1X/DAY
     Route: 048
     Dates: start: 202002

REACTIONS (2)
  - Aortic thrombosis [Recovering/Resolving]
  - Venous thrombosis [Recovering/Resolving]

NARRATIVE: CASE EVENT DATE: 20201003
